FAERS Safety Report 5392865-4 (Version None)
Quarter: 2007Q3

REPORT INFORMATION
  Report Type: 
  Country: None (occurrence: None)
  Receive Date: 20070720
  Receipt Date: 20070709
  Transmission Date: 20080115
  Serious: Yes (Other)
  Sender: FDA-Public Use
  Company Number: US-PFIZER INC-2007057530

PATIENT
  Sex: Female
  Weight: 60 kg

DRUGS (3)
  1. NEURONTIN [Suspect]
     Indication: NEUROPATHY
  2. LYRICA [Suspect]
     Indication: NEUROPATHY
     Dates: start: 20040101, end: 20040101
  3. WARFARIN SODIUM [Concomitant]

REACTIONS (1)
  - ABASIA [None]
